FAERS Safety Report 7439351-5 (Version None)
Quarter: 2011Q2

REPORT INFORMATION
  Report Type: 
  Country: None (occurrence: None)
  Receive Date: 20110427
  Receipt Date: 20110405
  Transmission Date: 20111010
  Serious: Yes (Other)
  Sender: FDA-Public Use
  Company Number: US-BAYER-201038352NA

PATIENT
  Age: 40 Year
  Sex: Female
  Weight: 72 kg

DRUGS (18)
  1. YASMIN [Suspect]
     Indication: ENDOMETRIOSIS
  2. LEVOXYL [Concomitant]
     Dosage: 0.175 MG, QD, MONDAY TO SATURDAY
  3. CLARITIN [Concomitant]
     Dosage: 10 MG, QD
  4. ACIDOPHILUS [Concomitant]
     Dosage: 10 MG, QD
  5. YASMIN [Suspect]
     Indication: CONTRACEPTION
     Dosage: UNK UNK, QD
     Route: 048
     Dates: start: 20010101, end: 20080901
  6. YASMIN [Suspect]
     Indication: HORMONE LEVEL ABNORMAL
  7. LEVOXYL [Concomitant]
     Indication: HYPOTHYROIDISM
     Dosage: UNK
     Dates: start: 20040101, end: 20100101
  8. BENTYL [Concomitant]
     Dosage: 10 MG, BID
  9. IBUPROFEN (ADVIL) [Concomitant]
  10. LEVOXYL [Concomitant]
     Dosage: 0.150 MG, OW
  11. SYNTHROID [Concomitant]
     Indication: HYPOTHYROIDISM
     Dosage: UNK
  12. AMOXICILLIN [Concomitant]
     Dosage: 500 MG, QID
  13. BIAXIN [Concomitant]
     Dosage: 500 MG, BID
  14. CALCIUM [Concomitant]
     Dosage: 1200 MG, QD
  15. YASMIN [Suspect]
     Indication: PREMENSTRUAL SYNDROME
  16. NEXIUM [Concomitant]
     Dosage: 40 MG, BID
  17. MULTI-VITAMINS [Concomitant]
  18. ANTIBIOTICS [Concomitant]
     Indication: HELICOBACTER GASTRITIS

REACTIONS (3)
  - CHOLECYSTITIS [None]
  - GALLBLADDER PAIN [None]
  - CHOLELITHIASIS [None]
